FAERS Safety Report 8413779-9 (Version None)
Quarter: 2012Q2

REPORT INFORMATION
  Report Type: 
  Country: None (occurrence: None)
  Receive Date: 20120605
  Receipt Date: 20120530
  Transmission Date: 20120825
  Serious: Yes (Other)
  Sender: FDA-Public Use
  Company Number: US-ROCHE-1073902

PATIENT
  Sex: Female
  Weight: 63.56 kg

DRUGS (2)
  1. XELODA [Suspect]
     Indication: COLORECTAL CANCER METASTATIC
     Route: 048
     Dates: start: 20120101, end: 20120301
  2. XELODA [Suspect]
     Route: 048
     Dates: start: 20120301, end: 20120501

REACTIONS (3)
  - MUSCLE SPASMS [None]
  - ABDOMINAL DISTENSION [None]
  - BURNING SENSATION [None]
